FAERS Safety Report 7969755-3 (Version None)
Quarter: 2011Q4

REPORT INFORMATION
  Report Type: 
  Country: None (occurrence: None)
  Receive Date: 20111122
  Receipt Date: 20110825
  Transmission Date: 20120403
  Serious: No
  Sender: FDA-Public Use
  Company Number: PHEH2011US02713

PATIENT
  Age: 39 Year
  Sex: Female

DRUGS (7)
  1. GILENYA [Suspect]
     Dosage: 0.5 MG, QD, ORAL
     Route: 048
  2. NAPROXEN [Concomitant]
  3. AMOXICILLIN [Concomitant]
  4. HYDROCHLOROTHIAZIDE [Concomitant]
  5. PRENATAL (ASCORBIC ACID, CALCIUM GLUCONATE, CUPRIC CARBONATE, BASIC, C [Concomitant]
  6. CRYSELLE [Concomitant]
  7. SINGULAIR [Concomitant]

REACTIONS (1)
  - DYSPEPSIA [None]
